FAERS Safety Report 19834452 (Version 1)
Quarter: 2021Q3

REPORT INFORMATION
  Report Type: Report from Study
  Country: None (occurrence: US)
  Receive Date: 20210914
  Receipt Date: 20210914
  Transmission Date: 20211014
  Serious: Yes (Hospitalization)
  Sender: FDA-Public Use
  Company Number: US-ABBVIE-21P-163-4072161-00

PATIENT
  Sex: Male

DRUGS (3)
  1. AZACITIDINE. [Concomitant]
     Active Substance: AZACITIDINE
     Indication: ACUTE MYELOID LEUKAEMIA
     Dosage: C2D1: DAILY FOR 7 DAYS
     Route: 042
     Dates: start: 20210827
  2. MAGROLIMAB [Concomitant]
     Active Substance: MAGROLIMAB
     Indication: ACUTE MYELOID LEUKAEMIA
     Dosage: C2D1: ON DAYS 1, 8, 15, 22
     Route: 042
     Dates: start: 20210827
  3. VENETOCLAX. [Suspect]
     Active Substance: VENETOCLAX
     Indication: ACUTE MYELOID LEUKAEMIA
     Dosage: C2D1= 27 AUG 2021 EVERY DAY FOR 21 DAYS
     Route: 048
     Dates: start: 20210827

REACTIONS (1)
  - Acute kidney injury [Recovered/Resolved]

NARRATIVE: CASE EVENT DATE: 20210901
